FAERS Safety Report 11142000 (Version 2)
Quarter: 2015Q2

REPORT INFORMATION
  Report Type: Spontaneous
  Country: JP (occurrence: JP)
  Receive Date: 20150527
  Receipt Date: 20150608
  Transmission Date: 20150821
  Serious: No
  Sender: FDA-Public Use
  Company Number: JP-EISAI MEDICAL RESEARCH-EC-2015-007115

PATIENT
  Age: 30 Year
  Sex: Male

DRUGS (2)
  1. ALEVIATIN [Concomitant]
     Active Substance: PHENYTOIN SODIUM
  2. EXCEGRAN [Suspect]
     Active Substance: ZONISAMIDE
     Indication: EPILEPSY
     Dosage: UNKNOWN

REACTIONS (1)
  - Seizure [Unknown]
